FAERS Safety Report 5280104-4 (Version None)
Quarter: 2007Q1

REPORT INFORMATION
  Report Type: 
  Country: None (occurrence: None)
  Receive Date: 20061229
  Receipt Date: 20061009
  Transmission Date: 20070707
  Serious: Yes (Other)
  Sender: FDA-Public Use
  Company Number: 2006UW19547

PATIENT
  Age: 65 Year
  Sex: Female

DRUGS (2)
  1. CRESTOR [Suspect]
     Dosage: 10 MG DAILY PO
     Route: 048
  2. LIPITOR [Concomitant]

REACTIONS (1)
  - ABNORMAL DREAMS [None]
